FAERS Safety Report 10238157 (Version 1)
Quarter: 2014Q2

REPORT INFORMATION
  Report Type: Spontaneous
  Country: IT (occurrence: IT)
  Receive Date: 20140616
  Receipt Date: 20140616
  Transmission Date: 20141212
  Serious: Yes (Other)
  Sender: FDA-Public Use
  Company Number: IT-JNJFOC-20140604084

PATIENT
  Age: 61 Year
  Sex: Female

DRUGS (2)
  1. XEPLION [Suspect]
     Indication: PSYCHOTIC DISORDER
     Route: 030
     Dates: start: 201402
  2. XEPLION [Suspect]
     Indication: PSYCHOTIC DISORDER
     Route: 030
     Dates: start: 201405

REACTIONS (4)
  - Psychomotor skills impaired [Not Recovered/Not Resolved]
  - Sedation [Not Recovered/Not Resolved]
  - Extrapyramidal disorder [Not Recovered/Not Resolved]
  - Dysarthria [Not Recovered/Not Resolved]
